FAERS Safety Report 12700381 (Version 1)
Quarter: 2016Q3

REPORT INFORMATION
  Report Type: Spontaneous
  Country: US (occurrence: US)
  Receive Date: 20160830
  Receipt Date: 20160830
  Transmission Date: 20161109
  Serious: No
  Sender: FDA-Public Use
  Company Number: US-SA-2016SA108196

PATIENT
  Age: 52 Year
  Sex: Male
  Weight: 63.04 kg

DRUGS (7)
  1. POTASSIUM CHLORIDE. [Concomitant]
     Active Substance: POTASSIUM CHLORIDE
     Dosage: AS DIRECTED
     Route: 048
     Dates: start: 20150506
  2. PLAVIX [Concomitant]
     Active Substance: CLOPIDOGREL BISULFATE
     Dosage: AS DIRECTED
     Route: 048
     Dates: start: 20160506
  3. SYNTHROID [Concomitant]
     Active Substance: LEVOTHYROXINE SODIUM
     Dosage: AS DIRECTED
     Route: 048
     Dates: start: 20160506
  4. ASPIRIN. [Concomitant]
     Active Substance: ASPIRIN
     Dosage: AS DIRECTED
     Route: 048
     Dates: start: 20160506
  5. FABRAZYME [Suspect]
     Active Substance: AGALSIDASE BETA
     Route: 042
  6. FABRAZYME [Suspect]
     Active Substance: AGALSIDASE BETA
     Route: 042
  7. LASIX [Concomitant]
     Active Substance: FUROSEMIDE
     Dosage: AS DIRECTED
     Route: 048
     Dates: start: 20160506

REACTIONS (1)
  - Influenza [Unknown]
